FAERS Safety Report 5740962-3 (Version None)
Quarter: 2008Q2

REPORT INFORMATION
  Report Type: 
  Country: None (occurrence: None)
  Receive Date: 20080515
  Receipt Date: 20080128
  Transmission Date: 20081010
  Serious: No
  Sender: FDA-Public Use
  Company Number: WAES 0802USA00032

PATIENT
  Age: 51 Year
  Sex: Male

DRUGS (3)
  1. ISENTRESS [Suspect]
     Dosage: PO
     Route: 048
     Dates: start: 20080101
  2. TRIZIVIR [Suspect]
     Dates: start: 20080101
  3. GLUCOPHAGE [Concomitant]

REACTIONS (1)
  - BLOOD GLUCOSE INCREASED [None]
